FAERS Safety Report 19509966 (Version 2)
Quarter: 2021Q3

REPORT INFORMATION
  Report Type: Other
  Country: FR (occurrence: FR)
  Receive Date: 20210709
  Receipt Date: 20210714
  Transmission Date: 20211014
  Serious: Yes (Death, Other)
  Sender: FDA-Public Use
  Company Number: FR-ROCHE-2863453

PATIENT

DRUGS (8)
  1. MYCOPHENOLATE MOFETIL. [Suspect]
     Active Substance: MYCOPHENOLATE MOFETIL
     Indication: ANTINEUTROPHIL CYTOPLASMIC ANTIBODY NEGATIVE
  2. RITUXIMAB. [Suspect]
     Active Substance: RITUXIMAB
     Indication: ANTINEUTROPHIL CYTOPLASMIC ANTIBODY NEGATIVE
     Dosage: INDUCTION TREATMENT
     Route: 041
  3. RITUXIMAB. [Suspect]
     Active Substance: RITUXIMAB
     Indication: GLOMERULONEPHRITIS RAPIDLY PROGRESSIVE
     Route: 041
  4. AZATHIOPRINE. [Suspect]
     Active Substance: AZATHIOPRINE
     Indication: GLOMERULONEPHRITIS RAPIDLY PROGRESSIVE
     Dosage: MAINTENANCE TREATMENT
     Route: 065
  5. CYCLOPHOSPHAMIDE. [Suspect]
     Active Substance: CYCLOPHOSPHAMIDE
     Indication: GLOMERULONEPHRITIS RAPIDLY PROGRESSIVE
     Dosage: INDUCTION TREATMENT
     Route: 065
  6. MYCOPHENOLATE MOFETIL. [Suspect]
     Active Substance: MYCOPHENOLATE MOFETIL
     Indication: GLOMERULONEPHRITIS RAPIDLY PROGRESSIVE
     Dosage: MAINTENANCE TREATMENT
     Route: 065
  7. CYCLOPHOSPHAMIDE. [Suspect]
     Active Substance: CYCLOPHOSPHAMIDE
     Indication: ANTINEUTROPHIL CYTOPLASMIC ANTIBODY NEGATIVE
  8. AZATHIOPRINE. [Suspect]
     Active Substance: AZATHIOPRINE
     Indication: ANTINEUTROPHIL CYTOPLASMIC ANTIBODY NEGATIVE

REACTIONS (5)
  - Disease recurrence [Unknown]
  - Death [Fatal]
  - End stage renal disease [Unknown]
  - Off label use [Unknown]
  - Glomerulonephritis rapidly progressive [Unknown]
